FAERS Safety Report 4444012-0 (Version None)
Quarter: 2004Q3

REPORT INFORMATION
  Report Type: 
  Country: None (occurrence: None)
  Receive Date: 20040729
  Receipt Date: 20040107
  Transmission Date: 20050211
  Serious: Yes (Other)
  Sender: FDA-Public Use
  Company Number: US-JNJFOC-20030901354

PATIENT
  Age: 17 Year
  Sex: Male
  Weight: 53.5244 kg

DRUGS (2)
  1. RISPERDAL [Suspect]
     Indication: PSYCHOTIC DISORDER
     Dosage: 2.5 MG, 1 IN 1 DAY, ORAL
     Route: 048
     Dates: start: 20001101
  2. NADOLOL [Concomitant]

REACTIONS (1)
  - LEUKOPENIA [None]
